FAERS Safety Report 7913122-5 (Version None)
Quarter: 2011Q4

REPORT INFORMATION
  Report Type: 
  Country: None (occurrence: None)
  Receive Date: 20111114
  Receipt Date: 20111107
  Transmission Date: 20120403
  Serious: Yes (Life-Threatening)
  Sender: FDA-Public Use
  Company Number: JP-ASTRAZENECA-2011SE68025

PATIENT
  Age: 27229 Day
  Sex: Male

DRUGS (7)
  1. CANDESARTAN CILEXETIL [Interacting]
     Indication: HYPERTENSION
     Route: 048
     Dates: end: 20110523
  2. ALDALIX [Interacting]
     Indication: HYPERTENSION
     Route: 048
     Dates: end: 20110523
  3. METFORMIN HCL [Concomitant]
     Indication: TYPE 2 DIABETES MELLITUS
     Route: 048
  4. SOTALOL HCL [Suspect]
     Indication: PRODUCT USED FOR UNKNOWN INDICATION
     Route: 065
     Dates: end: 20110523
  5. GLYBURIDE [Concomitant]
     Indication: TYPE 2 DIABETES MELLITUS
     Route: 048
  6. DILTIAZEM HCL [Suspect]
     Indication: HYPERTENSION
     Route: 048
     Dates: end: 20110523
  7. NEURONTIN [Concomitant]
     Indication: PAIN
     Route: 048
     Dates: end: 20110523

REACTIONS (5)
  - BRADYCARDIA [None]
  - ARRHYTHMIA [None]
  - CARDIAC ARREST [None]
  - HYPERKALAEMIA [None]
  - DRUG INTERACTION [None]
